FAERS Safety Report 7213063-5 (Version None)
Quarter: 2011Q1

REPORT INFORMATION
  Report Type: 
  Country: None (occurrence: None)
  Receive Date: 20110106
  Receipt Date: 20101230
  Transmission Date: 20110831
  Serious: Yes (Other)
  Sender: FDA-Public Use
  Company Number: B0692193A

PATIENT
  Sex: Female

DRUGS (2)
  1. OKI [Suspect]
     Indication: OROPHARYNGEAL PAIN
     Dates: start: 20101206, end: 20101209
  2. AUGMENTIN '125' [Suspect]
     Indication: OROPHARYNGEAL PAIN
     Dates: start: 20101206, end: 20101209

REACTIONS (1)
  - GASTROENTERITIS [None]
